FAERS Safety Report 19896342 (Version 1)
Quarter: 2021Q3

REPORT INFORMATION
  Report Type: Spontaneous
  Country: CN (occurrence: CN)
  Receive Date: 20210929
  Receipt Date: 20210929
  Transmission Date: 20211014
  Serious: Yes (Hospitalization, Other)
  Sender: FDA-Public Use
  Company Number: CN-PFIZER INC-202101236845

PATIENT
  Age: 35 Year
  Sex: Male
  Weight: 47.5 kg

DRUGS (2)
  1. MEPEM [Suspect]
     Active Substance: MEROPENEM
     Indication: PNEUMONIA
     Dosage: 1G [BID]
     Route: 041
     Dates: start: 20210730, end: 20210731
  2. IMIPENEM AND CILASTATIN [Suspect]
     Active Substance: CILASTATIN SODIUM\IMIPENEM
     Indication: PNEUMONIA
     Dosage: 0.5G [TID]
     Route: 041
     Dates: start: 20210731, end: 20210806

REACTIONS (3)
  - Henoch-Schonlein purpura [Recovered/Resolved]
  - Pyrexia [Unknown]
  - Hepatic function abnormal [Recovering/Resolving]

NARRATIVE: CASE EVENT DATE: 20210801
